FAERS Safety Report 7624597-3 (Version None)
Quarter: 2011Q3

REPORT INFORMATION
  Report Type: 
  Country: None (occurrence: None)
  Receive Date: 20110720
  Receipt Date: 20110711
  Transmission Date: 20111222
  Serious: Yes (Hospitalization)
  Sender: FDA-Public Use
  Company Number: US-BAYER-2010-008920

PATIENT
  Age: 24 Year
  Sex: Female

DRUGS (8)
  1. YASMIN [Suspect]
     Indication: ACNE
     Dosage: 1 UNK, UNK
     Route: 048
     Dates: start: 20030501, end: 20031101
  2. TYLENOL-500 [Concomitant]
  3. METHERGINE [Concomitant]
     Indication: UTERINE DISORDER
     Dosage: UNK
     Route: 048
     Dates: start: 20030729
  4. CALCIUM CARBONATE [Concomitant]
  5. YASMIN [Suspect]
     Indication: CONTRACEPTION
  6. DOXYCYCLINE [Concomitant]
     Indication: ANTIBIOTIC THERAPY
     Dosage: UNK
     Route: 048
     Dates: start: 20030729
  7. IBUPROFEN [Concomitant]
     Indication: PAIN
     Dosage: UNK
     Route: 048
     Dates: start: 20030729
  8. PANLOR SS [Concomitant]
     Indication: PAIN
     Dosage: 1 DF, PRN
     Route: 048

REACTIONS (3)
  - CHOLELITHIASIS [None]
  - PAIN [None]
  - STRESS [None]
